FAERS Safety Report 24250956 (Version 2)
Quarter: 2024Q3

REPORT INFORMATION
  Report Type: Spontaneous
  Country: US (occurrence: None)
  Receive Date: 20240826
  Receipt Date: 20240912
  Transmission Date: 20241016
  Serious: Yes (Other)
  Sender: ASTRAZENECA
  Company Number: 2024A189040

PATIENT
  Age: 5 Year
  Sex: Male

DRUGS (1)
  1. NEXIUM [Suspect]
     Active Substance: ESOMEPRAZOLE MAGNESIUM
     Indication: Gastrooesophageal reflux disease
     Route: 048

REACTIONS (5)
  - Haematemesis [Unknown]
  - Duodenal stenosis [Unknown]
  - Vomiting [Unknown]
  - Off label use [Unknown]
  - Product colour issue [Unknown]
